FAERS Safety Report 9068494 (Version 1)
Quarter: 2013Q1

REPORT INFORMATION
  Report Type: Spontaneous
  Country: US (occurrence: None)
  Receive Date: 20130212
  Receipt Date: 20130212
  Transmission Date: 20140127
  Serious: Yes (Hospitalization)
  Sender: FDA-Public Use
  Company Number: None

PATIENT
  Age: 37 Year
  Sex: Female
  Weight: 54.43 kg

DRUGS (2)
  1. IVIG [Suspect]
     Indication: NEUROPATHY PERIPHERAL
     Route: 041
     Dates: start: 20130115, end: 20130119
  2. IVIG [Suspect]
     Indication: NEUROPATHY PERIPHERAL
     Route: 041
     Dates: start: 20130115, end: 20130119

REACTIONS (1)
  - Meningitis [None]
